FAERS Safety Report 23201570 (Version 1)
Quarter: 2023Q4

REPORT INFORMATION
  Report Type: Spontaneous
  Country: FR (occurrence: FR)
  Receive Date: 20231118
  Receipt Date: 20231118
  Transmission Date: 20240109
  Serious: Yes (Other)
  Sender: FDA-Public Use
  Company Number: None

PATIENT
  Age: 16 Year
  Sex: Female
  Weight: 81 kg

DRUGS (4)
  1. CLOZAPINE [Interacting]
     Active Substance: CLOZAPINE
     Indication: Product used for unknown indication
     Dosage: 75 MILLIGRAM DAILY; 75 MG 1/D
  2. FLUOXETINE [Interacting]
     Active Substance: FLUOXETINE HYDROCHLORIDE
     Indication: Depression
     Dosage: 40 MILLIGRAM DAILY; 40 MG/DAY
  3. CHLORPROMAZINE [Interacting]
     Active Substance: CHLORPROMAZINE
     Indication: Product used for unknown indication
     Dosage: 120 GTT DAILY; 30 DROPS 4 TIMES A DAY
  4. ETOMIDATE [Interacting]
     Active Substance: ETOMIDATE
     Indication: Anaesthesia
     Dosage: 20 MG 1 TIME
     Dates: start: 20230928, end: 20230928

REACTIONS (2)
  - Generalised tonic-clonic seizure [Recovered/Resolved]
  - Drug interaction [Unknown]

NARRATIVE: CASE EVENT DATE: 20230928
